FAERS Safety Report 14934553 (Version 4)
Quarter: 2019Q2

REPORT INFORMATION
  Report Type: Report from Study
  Country: US (occurrence: US)
  Receive Date: 20180524
  Receipt Date: 20190618
  Transmission Date: 20190711
  Serious: No
  Sender: FDA-Public Use
  Company Number: US-INCYTE CORPORATION-2018IN003763

PATIENT

DRUGS (2)
  1. JAKAFI [Suspect]
     Active Substance: RUXOLITINIB
     Indication: POLYCYTHAEMIA VERA
     Dosage: 5MG QD MON-THUR, 5MG BID ON FRI,SAT,SUN
     Route: 048
  2. JAKAFI [Suspect]
     Active Substance: RUXOLITINIB
     Dosage: 5 MG IN AM AND (2) 5 MG IN PM
     Route: 048
     Dates: start: 20160822

REACTIONS (9)
  - Malaise [Unknown]
  - Nervousness [Unknown]
  - Tooth fracture [Unknown]
  - Fatigue [Unknown]
  - Pain [Unknown]
  - Inappropriate schedule of product administration [Unknown]
  - Viral infection [Unknown]
  - Rash [Unknown]
  - Hyperphagia [Unknown]

NARRATIVE: CASE EVENT DATE: 201806
